FAERS Safety Report 5847409-7 (Version None)
Quarter: 2008Q3

REPORT INFORMATION
  Report Type: 
  Country: None (occurrence: None)
  Receive Date: 20080815
  Receipt Date: 20080806
  Transmission Date: 20090109
  Serious: Yes (Hospitalization)
  Sender: FDA-Public Use
  Company Number: DE-ABBOTT-08P-062-0469457-00

PATIENT
  Sex: Male
  Weight: 95 kg

DRUGS (4)
  1. HUMIRA [Suspect]
     Indication: PSORIASIS
     Route: 058
     Dates: start: 20080701
  2. GLUCOCORTICOIDS [Concomitant]
     Indication: PSORIASIS
     Route: 061
     Dates: start: 20080804
  3. ASPIRIN [Concomitant]
     Indication: PSORIASIS
  4. VIT D ANALOG [Concomitant]
     Indication: PSORIASIS
     Dates: start: 20030101

REACTIONS (1)
  - FOOT FRACTURE [None]
